FAERS Safety Report 4318735-8 (Version None)
Quarter: 2004Q1

REPORT INFORMATION
  Report Type: 
  Country: None (occurrence: None)
  Receive Date: 20040317
  Receipt Date: 20040317
  Transmission Date: 20041129
  Serious: Yes (Other)
  Sender: FDA-Public Use
  Company Number: None

PATIENT
  Age: 23 Year
  Sex: Male
  Weight: 54.5 kg

DRUGS (3)
  1. ZOSYN [Suspect]
     Indication: DERMATITIS EXFOLIATIVE
     Dosage: 3.375 G Q 4 HOURS
     Dates: start: 20031221
  2. NAFCILLIN SODIUM [Suspect]
     Dosage: 2 G Q 6 HOURS
     Dates: start: 20031218, end: 20031220
  3. . [Concomitant]

REACTIONS (2)
  - OEDEMA [None]
  - RED MAN SYNDROME [None]
